FAERS Safety Report 10483410 (Version 1)
Quarter: 2014Q3

REPORT INFORMATION
  Report Type: Spontaneous
  Country: US (occurrence: None)
  Receive Date: 20140908
  Receipt Date: 20140908
  Transmission Date: 20150326
  Serious: Yes (Other)
  Sender: FDA-Public Use
  Company Number: 394169

PATIENT
  Age: 75 Year
  Sex: Male
  Weight: 82.5 kg

DRUGS (1)
  1. VICTOZA [Suspect]
     Active Substance: LIRAGLUTIDE
     Indication: TYPE 2 DIABETES MELLITUS
     Route: 058
     Dates: start: 20120315, end: 2012

REACTIONS (2)
  - Pancreatitis acute [None]
  - Diverticulum [None]

NARRATIVE: CASE EVENT DATE: 20131118
